FAERS Safety Report 7022391-8 (Version None)
Quarter: 2010Q3

REPORT INFORMATION
  Report Type: 
  Country: None (occurrence: None)
  Receive Date: 20100930
  Receipt Date: 20100917
  Transmission Date: 20110219
  Serious: Yes (Hospitalization)
  Sender: FDA-Public Use
  Company Number: JP-ROCHE-699513

PATIENT
  Sex: Female

DRUGS (10)
  1. TOCILIZUMAB [Suspect]
     Indication: RHEUMATOID ARTHRITIS
     Route: 041
     Dates: start: 20090825, end: 20090825
  2. TOCILIZUMAB [Suspect]
     Route: 041
     Dates: start: 20090928, end: 20090928
  3. TOCILIZUMAB [Suspect]
     Route: 041
     Dates: start: 20091028, end: 20091028
  4. TOCILIZUMAB [Suspect]
     Route: 041
     Dates: start: 20091216, end: 20091216
  5. ALOSENN [Concomitant]
     Dosage: FORM:GRANULATED POWDER
     Route: 048
  6. METHYCOOL [Concomitant]
     Route: 048
  7. LIMAPROST ALFADEX [Concomitant]
     Route: 048
     Dates: start: 20091101
  8. CELECOXIB [Concomitant]
     Dosage: DRUG NAME:CELECOX
     Route: 048
     Dates: start: 20091028
  9. D-ALFA [Concomitant]
     Route: 048
  10. PARIET [Concomitant]
     Route: 048

REACTIONS (3)
  - LARGE INTESTINAL ULCER [None]
  - SMALL INTESTINAL HAEMORRHAGE [None]
  - SMALL INTESTINE ULCER [None]
